FAERS Safety Report 23168260 (Version 2)
Quarter: 2023Q4

REPORT INFORMATION
  Report Type: Spontaneous
  Country: ES (occurrence: ES)
  Receive Date: 20231109
  Receipt Date: 20231117
  Transmission Date: 20240110
  Serious: Yes (Other)
  Sender: FDA-Public Use
  Company Number: ES-JNJFOC-20231108232

PATIENT

DRUGS (1)
  1. IBRUTINIB [Suspect]
     Active Substance: IBRUTINIB
     Indication: Mantle cell lymphoma
     Route: 048

REACTIONS (15)
  - Hepatotoxicity [Unknown]
  - Neuropathy peripheral [Unknown]
  - Arthralgia [Unknown]
  - Hypertension [Unknown]
  - Cytomegalovirus infection reactivation [Unknown]
  - Respiratory tract infection [Unknown]
  - Diarrhoea [Unknown]
  - Anaemia [Unknown]
  - Thrombocytopenia [Unknown]
  - Urinary tract infection [Unknown]
  - Neutropenia [Unknown]
  - Atrial fibrillation [Unknown]
  - Rash [Unknown]
  - Fungal infection [Unknown]
  - Haemorrhage [Unknown]
